FAERS Safety Report 9422539 (Version 1)
Quarter: 2013Q3

REPORT INFORMATION
  Report Type: Spontaneous
  Country: BR (occurrence: BR)
  Receive Date: 20130726
  Receipt Date: 20130726
  Transmission Date: 20140515
  Serious: Yes (Hospitalization)
  Sender: FDA-Public Use
  Company Number: BR-ASTRAZENECA-2013SE55182

PATIENT
  Age: 23005 Day
  Sex: Male
  Weight: 80 kg

DRUGS (1)
  1. ATACAND HCT [Suspect]
     Indication: HYPERTENSION
     Dosage: 16/12.5 MG, EVERY MORNING
     Route: 048
     Dates: start: 2012

REACTIONS (1)
  - Myocardial infarction [Recovering/Resolving]
